FAERS Safety Report 5744122 (Version 1)
Quarter: 2020Q3

REPORT INFORMATION
  Report Type: Spontaneous
  Country: DE (occurrence: None)
  Receive Date: 20040122
  Receipt Date: 20040122
  Transmission Date: 20201104
  Serious: Yes (Hospitalization)
  Sender: FDA-Public Use
  Company Number: 200410101DE

PATIENT
  Age: 33 Year
  Sex: Female
  Weight: 52 kg

DRUGS (63)
  1. AMOXICILLIN\CLAVULANATE POTASSIUM [Suspect]
     Active Substance: AMOXICILLIN\CLAVULANATE POTASSIUM
     Indication: INFECTION
     Dosage: 2.2 G TID IV
     Route: 042
     Dates: start: 20011121, end: 20011123
  2. NOVODIGAL (.BETA.?ACETYLDIGOXIN) [Suspect]
     Active Substance: .BETA.-ACETYLDIGOXIN
     Indication: CARDIAC FAILURE
     Dosage: 0.2 MG QD IV
     Route: 042
     Dates: start: 20011121, end: 20011202
  3. LECITHIN, SOYBEAN. [Suspect]
     Active Substance: LECITHIN, SOYBEAN
     Dosage: 250 MG/DAY IVF
     Route: 042
     Dates: start: 20011121, end: 20011205
  4. KETAMINE [Suspect]
     Active Substance: KETAMINE
     Indication: GENERAL ANAESTHESIA
     Dosage: IVF
     Route: 042
     Dates: start: 20011205, end: 20011205
  5. ATOSIL [Concomitant]
  6. VANCOMYCIN [Concomitant]
     Active Substance: VANCOMYCIN
  7. ERGENYL [Concomitant]
  8. SAB SIMPLEX [Concomitant]
  9. NUTRIFLEX [Concomitant]
  10. NYSTATIN. [Concomitant]
     Active Substance: NYSTATIN
  11. FERRLECIT [Suspect]
     Active Substance: SODIUM FERRIC GLUCONATE COMPLEX
     Indication: IRON DEFICIENCY
     Dosage: IV
     Route: 042
     Dates: start: 20011205, end: 20011205
  12. URSODIOL. [Suspect]
     Active Substance: URSODIOL
     Indication: CHOLELITHIASIS
     Dosage: TID PO
     Route: 048
     Dates: start: 20011123, end: 20011128
  13. HEPARIN [Suspect]
     Active Substance: HEPARIN SODIUM
     Indication: THROMBOSIS PROPHYLAXIS
     Dosage: 20000 IU/DAY IV
     Route: 042
     Dates: start: 20011126, end: 20011203
  14. IRON [Concomitant]
     Active Substance: IRON
  15. PASPERTIN [Concomitant]
  16. FENTANYL. [Concomitant]
     Active Substance: FENTANYL
  17. CLONAZEPAM. [Suspect]
     Active Substance: CLONAZEPAM
     Dosage: 1 MG/DAY IV
     Route: 042
     Dates: start: 20011112, end: 20011205
  18. RANITIDINE HYDROCHLORIDE. [Suspect]
     Active Substance: RANITIDINE HYDROCHLORIDE
     Dosage: 1000 MG/DAY IV
     Route: 042
     Dates: start: 20011123, end: 20011126
  19. FOSFOMYCIN [Suspect]
     Active Substance: FOSFOMYCIN
     Indication: INFECTION
     Dosage: 2 G TID IV
     Route: 042
     Dates: start: 20011130, end: 20011205
  20. THIAMINE HYDROCHLORIDE. [Concomitant]
     Active Substance: THIAMINE HYDROCHLORIDE
  21. OTRIVEN NT [Concomitant]
  22. DIPIDOLOR [Concomitant]
  23. CALCIUM [Concomitant]
     Active Substance: CALCIUM
  24. CLAFORAN [Suspect]
     Active Substance: CEFOTAXIME SODIUM
     Indication: INFECTION
     Dosage: 2 G TID IV
     Route: 042
     Dates: start: 20011130, end: 20011201
  25. NADROPARIN CALCIUM [Suspect]
     Active Substance: NADROPARIN CALCIUM
     Indication: THROMBOSIS PROPHYLAXIS
     Dosage: QD SC
     Route: 058
     Dates: start: 20011117, end: 20011124
  26. NADROPARIN CALCIUM [Suspect]
     Active Substance: NADROPARIN CALCIUM
     Indication: THROMBOSIS PROPHYLAXIS
     Dosage: QD  SSC
     Route: 058
     Dates: start: 20011205, end: 20011207
  27. ORNITHINE\PANCREATIN [Suspect]
     Active Substance: ORNITHINE\PANCRELIPASE
     Indication: METABOLIC DISORDER
     Dosage: QID PO
     Route: 048
     Dates: start: 20011124, end: 20011128
  28. AMINO ACIDS [Suspect]
     Active Substance: AMINO ACIDS, SOURCE UNSPECIFIED
     Dosage: 2000 ML/DAY IVF
     Route: 042
     Dates: start: 20011124, end: 20011130
  29. ZIENAM [Concomitant]
  30. VITAMIN B KOMPLEX [Concomitant]
  31. NATRIUMCHLORID [Concomitant]
  32. DOBUTAMIN [Concomitant]
  33. MULTI?VITAMIN [Concomitant]
     Active Substance: .ALPHA.-TOCOPHEROL ACETATE, DL-\ASCORBIC ACID\CYANOCOBALAMIN\FLUORIDE ION\FOLIC ACID\NIACIN\PYRIDOXINE\RIBOFLAVIN\THIAMINE\VITAMIN A\VITAMIN D
  34. MAGNESIUM VERLA [Concomitant]
     Active Substance: MAGNESIUM
  35. LAMICTAL [Suspect]
     Active Substance: LAMOTRIGINE
     Indication: EPILEPSY
     Dosage: PO
     Route: 048
     Dates: start: 20011112, end: 20011114
  36. DORMICUM (MIDAZOLAM HYDROCHLORIDE) [Suspect]
     Active Substance: MIDAZOLAM HYDROCHLORIDE
     Indication: PAIN
     Dosage: IV
     Route: 042
     Dates: start: 20011113, end: 20011117
  37. COTRIM FORTE [Suspect]
     Active Substance: SULFAMETHOXAZOLE\TRIMETHOPRIM
     Indication: INFECTION
     Dosage: 960 MG BID IV
     Route: 042
     Dates: start: 20011116, end: 20011120
  38. DIFLUCAN [Suspect]
     Active Substance: FLUCONAZOLE
     Indication: CANDIDA INFECTION
     Dosage: 200 MG/DAY IV
     Route: 042
     Dates: start: 20011118, end: 20011120
  39. INSULIN NOS [Suspect]
     Active Substance: INSULIN NOS
     Indication: METABOLIC DISORDER
     Dosage: 50 MLDAY IVF
     Route: 042
     Dates: start: 20011124, end: 20011202
  40. THEOPHYLLINE [Suspect]
     Active Substance: THEOPHYLLINE ANHYDROUS
     Indication: BRONCHOSPASM
     Dosage: 6 MMG/H IV
     Route: 042
     Dates: start: 20011205, end: 20011207
  41. PANTOZOL [Concomitant]
     Active Substance: PANTOPRAZOLE SODIUM
  42. XANEF [Concomitant]
  43. NOREPINEPHRINE BITARTRATE. [Concomitant]
     Active Substance: NOREPINEPHRINE BITARTRATE
  44. SOLU?DECORTIN H [Concomitant]
  45. DIPYRONE [Suspect]
     Active Substance: DIPYRONE
     Indication: PAIN
     Dosage: PRN IV
     Route: 042
     Dates: start: 20011128, end: 20011202
  46. CIPROFLOXACIN HYDROCHLORIDE. [Suspect]
     Active Substance: CIPROFLOXACIN HYDROCHLORIDE
     Indication: INFECTION
     Dosage: 200 MG BID IV
     Route: 042
     Dates: start: 20011121, end: 20011123
  47. TAVOR (EXPIDET) [Suspect]
     Active Substance: LORAZEPAM
     Indication: AGITATION
     Dosage: PO
     Route: 048
     Dates: start: 20011109, end: 20011208
  48. CLONT (METRONIDAZOLE) [Concomitant]
     Active Substance: METRONIDAZOLE
  49. LAMICTAL [Suspect]
     Active Substance: LAMOTRIGINE
     Indication: EPILEPSY
     Dosage: PO
     Route: 048
     Dates: start: 20011118, end: 20011124
  50. AKINETON [Concomitant]
     Active Substance: BIPERIDEN HYDROCHLORIDE
  51. ALBUMIN (HUMAN) [Concomitant]
     Active Substance: ALBUMIN HUMAN
  52. FERRO?FOLSAN [Concomitant]
  53. DORMICUM (MIDAZOLAM HYDROCHLORIDE) [Suspect]
     Active Substance: MIDAZOLAM HYDROCHLORIDE
     Indication: PAIN
     Dosage: IV
     Route: 042
     Dates: start: 20011205, end: 20011207
  54. LACTULOSE. [Suspect]
     Active Substance: LACTULOSE
     Indication: CONSTIPATION
     Dosage: 60 ML QID PO
     Route: 048
     Dates: start: 20011128, end: 20011205
  55. CLONIDINE TRANSDERMAL SYSTEM [Suspect]
     Active Substance: CLONIDINE
     Indication: HYPERTENSION
     Dosage: IVF
     Route: 042
     Dates: start: 20011205, end: 20011207
  56. HEPARIN [Concomitant]
     Active Substance: HEPARIN SODIUM
  57. BRICANYL [Concomitant]
     Active Substance: TERBUTALINE SULFATE
  58. POTASSIUM CHLORIDE. [Concomitant]
     Active Substance: POTASSIUM CHLORIDE
  59. GLUCOSE, LIQUID [Concomitant]
     Active Substance: GLUCOSE, LIQUID
  60. KONAKION [Concomitant]
     Active Substance: PHYTONADIONE
  61. MULTI?VITAMIN [Concomitant]
     Active Substance: .ALPHA.-TOCOPHEROL ACETATE, DL-\ASCORBIC ACID\CYANOCOBALAMIN\FLUORIDE ION\FOLIC ACID\NIACIN\PYRIDOXINE\RIBOFLAVIN\THIAMINE\VITAMIN A\VITAMIN D
  62. KETAMIN [Concomitant]
  63. LASIX [Suspect]
     Active Substance: FUROSEMIDE
     Indication: OEDEMA
     Dosage: 500 MG/DAY IV
     Route: 042
     Dates: start: 20011109, end: 20011126

REACTIONS (4)
  - Toxic epidermal necrolysis [None]
  - Sepsis [None]
  - Stevens-Johnson syndrome [None]
  - Angiopathy [None]

NARRATIVE: CASE EVENT DATE: 20011206
